FAERS Safety Report 14479845 (Version 1)
Quarter: 2018Q1

REPORT INFORMATION
  Report Type: Spontaneous
  Country: JP (occurrence: JP)
  Receive Date: 20180202
  Receipt Date: 20180202
  Transmission Date: 20180509
  Serious: Yes (Hospitalization, Other)
  Sender: FDA-Public Use
  Company Number: JP-FERRINGPH-2018FE00349

PATIENT

DRUGS (4)
  1. GONAX [Suspect]
     Active Substance: DEGARELIX
     Indication: PROSTATE CANCER
     Dosage: 80 MG, MONTHLY
     Route: 058
  2. XTANDI [Suspect]
     Active Substance: ENZALUTAMIDE
     Indication: HORMONE-REFRACTORY PROSTATE CANCER
     Dosage: 160 MG, 1 TIME DAILY
     Route: 048
     Dates: start: 20171222, end: 20180118
  3. RANMARK [Concomitant]
     Active Substance: DENOSUMAB
  4. FENTOS [Concomitant]
     Active Substance: FENTANYL

REACTIONS (2)
  - Pancytopenia [Recovered/Resolved]
  - Metastases to bone [Unknown]
